FAERS Safety Report 9341250 (Version 22)
Quarter: 2014Q2

REPORT INFORMATION
  Report Type: Spontaneous
  Country: CA (occurrence: CA)
  Receive Date: 20130611
  Receipt Date: 20140405
  Transmission Date: 20141212
  Serious: Yes (Hospitalization)
  Sender: FDA-Public Use
  Company Number: CA-ROCHE-1235336

PATIENT
  Age: 64 Year
  Sex: Female
  Weight: 110 kg

DRUGS (25)
  1. XOLAIR [Suspect]
     Indication: ASTHMA
     Route: 058
     Dates: start: 20051104
  2. XOLAIR [Suspect]
     Route: 058
     Dates: start: 20130219
  3. XOLAIR [Suspect]
     Route: 058
     Dates: start: 20130402
  4. XOLAIR [Suspect]
     Route: 058
     Dates: start: 20130417
  5. XOLAIR [Suspect]
     Route: 058
     Dates: start: 20130430
  6. XOLAIR [Suspect]
     Route: 058
     Dates: start: 20130514
  7. XOLAIR [Suspect]
     Route: 058
     Dates: start: 20130605
  8. XOLAIR [Suspect]
     Route: 058
     Dates: start: 20130719
  9. XOLAIR [Suspect]
     Route: 058
     Dates: start: 20130702
  10. XOLAIR [Suspect]
     Route: 058
     Dates: start: 20130717
  11. XOLAIR [Suspect]
     Route: 058
     Dates: start: 20130801
  12. XOLAIR [Suspect]
     Route: 058
     Dates: start: 20130814
  13. XOLAIR [Suspect]
     Route: 058
     Dates: start: 20130828
  14. XOLAIR [Suspect]
     Route: 065
     Dates: start: 20130911
  15. XOLAIR [Suspect]
     Route: 065
     Dates: start: 20131030
  16. XOLAIR [Suspect]
     Route: 058
     Dates: start: 20131113
  17. XOLAIR [Suspect]
     Route: 065
     Dates: start: 20131127
  18. XOLAIR [Suspect]
     Route: 058
     Dates: start: 20131211
  19. XOLAIR [Suspect]
     Route: 058
     Dates: start: 20140108
  20. XOLAIR [Suspect]
     Route: 058
     Dates: start: 20140122
  21. XOLAIR [Suspect]
     Route: 058
     Dates: start: 20140205
  22. XOLAIR [Suspect]
     Route: 058
     Dates: start: 20140219
  23. XOLAIR [Suspect]
     Route: 058
     Dates: start: 20140305
  24. XOLAIR [Suspect]
     Route: 065
     Dates: start: 20140319
  25. XOLAIR [Suspect]
     Route: 058
     Dates: start: 20140331

REACTIONS (14)
  - Pneumonia [Unknown]
  - Influenza [Unknown]
  - Wheezing [Not Recovered/Not Resolved]
  - Dyspnoea [Unknown]
  - Rales [Not Recovered/Not Resolved]
  - Asthma [Unknown]
  - Obstructive airways disorder [Unknown]
  - Breath sounds abnormal [Unknown]
  - Blood pressure increased [Not Recovered/Not Resolved]
  - Heart rate increased [Recovered/Resolved]
  - Incorrect dose administered [Unknown]
  - Weight increased [Unknown]
  - Weight decreased [Not Recovered/Not Resolved]
  - Respiratory rate increased [Unknown]
